FAERS Safety Report 24111314 (Version 3)
Quarter: 2024Q4

REPORT INFORMATION
  Report Type: Spontaneous
  Country: US (occurrence: US)
  Receive Date: 20240718
  Receipt Date: 20241116
  Transmission Date: 20250114
  Serious: No
  Sender: SANOFI AVENTIS
  Company Number: US-SA-SAC20240716000202

PATIENT
  Age: 17 Year
  Sex: Female

DRUGS (4)
  1. DUPIXENT [Suspect]
     Active Substance: DUPILUMAB
     Indication: Dermatitis atopic
     Dosage: 2 DF, 1X
     Route: 058
     Dates: start: 202407, end: 202407
  2. DUPIXENT [Suspect]
     Active Substance: DUPILUMAB
     Dosage: 300 MG, QOW
     Route: 058
     Dates: start: 2024
  3. TYLENOL [Concomitant]
     Active Substance: ACETAMINOPHEN
     Dosage: UNK
  4. NAPROXEN [Concomitant]
     Active Substance: NAPROXEN

REACTIONS (7)
  - Musculoskeletal discomfort [Recovered/Resolved]
  - Musculoskeletal discomfort [Unknown]
  - Muscle discomfort [Recovered/Resolved]
  - Therapeutic response unexpected [Unknown]
  - Myalgia [Unknown]
  - Musculoskeletal pain [Unknown]
  - Eczema [Recovered/Resolved]

NARRATIVE: CASE EVENT DATE: 20240101
